FAERS Safety Report 4790391-4 (Version None)
Quarter: 2005Q4

REPORT INFORMATION
  Report Type: 
  Country: None (occurrence: None)
  Receive Date: 20051005
  Receipt Date: 20050921
  Transmission Date: 20060501
  Serious: Yes (Other)
  Sender: FDA-Public Use
  Company Number: US015137

PATIENT
  Sex: Male

DRUGS (2)
  1. PROVIGIL [Suspect]
     Indication: SLEEP DISORDER
     Dosage: 400 MG QD ORAL
     Route: 048
  2. PROVIGIL [Suspect]
     Indication: SLEEP DISORDER
     Dosage: 50 MG QD ORAL
     Route: 048

REACTIONS (7)
  - BENIGN PROSTATIC HYPERPLASIA [None]
  - FATIGUE [None]
  - FLATULENCE [None]
  - HEADACHE [None]
  - MALAISE [None]
  - NAUSEA [None]
  - RENAL FAILURE [None]
